FAERS Safety Report 19910369 (Version 1)
Quarter: 2021Q4

REPORT INFORMATION
  Report Type: Spontaneous
  Country: US (occurrence: US)
  Receive Date: 20211004
  Receipt Date: 20211004
  Transmission Date: 20220303
  Serious: Yes (Other)
  Sender: FDA-Public Use
  Company Number: US-JNJFOC-20210925669

PATIENT
  Age: 6 Decade
  Sex: Female

DRUGS (4)
  1. NEUTROGENA BEACH DEFENSE WATER PLUS SUN PROTECTION SUNSCREEN BROAD SPE [Suspect]
     Active Substance: AVOBENZONE\HOMOSALATE\OCTISALATE\OCTOCRYLENE
     Indication: Product used for unknown indication
     Dosage: USE IT FOR SUMMERS  SPRAY IT ON EVERY PART OF MY BODY, ARMS. CHEST AND BACK. MAYBE I USE ONE BOTTLE
     Route: 061
  2. NEUTROGENA BEACH DEFENSE WATER PLUS SUN PROTECTION SUNSCREEN BROAD SPE [Suspect]
     Active Substance: AVOBENZONE\HOMOSALATE\OCTISALATE\OCTOCRYLENE
     Indication: Product used for unknown indication
     Dosage: USE IT FOR SUMMERS  SPRAY IT ON EVERY PART OF MY BODY, ARMS. CHEST AND BACK. MAYBE I USE ONE BOTTLE
     Route: 061
  3. NEUTROGENA BEACH DEFENSE WATER PLUS SUN PROTECTION SUNSCREEN BROAD SPE [Suspect]
     Active Substance: AVOBENZONE\HOMOSALATE\OCTISALATE\OCTOCRYLENE
     Indication: Product used for unknown indication
     Dosage: USE IT FOR SUMMERS  SPRAY IT ON EVERY PART OF MY BODY, ARMS. CHEST AND BACK. MAYBE I USE ONE BOTTLE
     Route: 061
  4. NEUTROGENA ULTRA SHEER BODY MIST SUNSCREEN BROAD SPECTRUM SPF 30 (AVO\ [Suspect]
     Active Substance: AVOBENZONE\HOMOSALATE\OCTISALATE\OCTOCRYLENE
     Indication: Product used for unknown indication
     Route: 061

REACTIONS (4)
  - Haematological malignancy [Unknown]
  - Plasma cell myeloma [Unknown]
  - Skin cancer [Unknown]
  - Neoplasm malignant [Unknown]

NARRATIVE: CASE EVENT DATE: 20150101
